FAERS Safety Report 26045370 (Version 1)
Quarter: 2025Q4

REPORT INFORMATION
  Report Type: Spontaneous
  Country: US (occurrence: US)
  Receive Date: 20251114
  Receipt Date: 20251114
  Transmission Date: 20260117
  Serious: Yes (Hospitalization, Other)
  Sender: CONCORD BIOTECH LTD
  Company Number: US-CBL-003507

PATIENT
  Age: 75 Year
  Sex: Female

DRUGS (21)
  1. MYCOPHENOLATE MOFETIL [Suspect]
     Active Substance: MYCOPHENOLATE MOFETIL
     Indication: Immune-mediated myocarditis
     Route: 065
  2. PREDNISONE [Suspect]
     Active Substance: PREDNISONE
     Indication: Immune-mediated myocarditis
     Dosage: ON DAY 4
     Route: 048
  3. METHYLPREDNISOLONE [Concomitant]
     Active Substance: METHYLPREDNISOLONE
     Indication: Immune-mediated myocarditis
     Route: 042
  4. Immunoglobulin [Concomitant]
     Indication: Immune-mediated myocarditis
     Dosage: 0.4 G/KG
     Route: 042
  5. ABATACEPT [Concomitant]
     Active Substance: ABATACEPT
     Indication: Immune-mediated myocarditis
     Dosage: SINGLE DOSE
     Route: 042
  6. MYCOPHENOLATE MOFETIL [Suspect]
     Active Substance: MYCOPHENOLATE MOFETIL
     Indication: Immune-mediated myocarditis
     Dosage: DOSE INCREASED
     Route: 065
  7. MYCOPHENOLATE MOFETIL [Suspect]
     Active Substance: MYCOPHENOLATE MOFETIL
     Indication: Immune-mediated myositis
     Dosage: DOSE INCREASED
     Route: 065
  8. MYCOPHENOLATE MOFETIL [Suspect]
     Active Substance: MYCOPHENOLATE MOFETIL
     Indication: Myasthenia gravis
     Dosage: DOSE INCREASED
     Route: 065
  9. PREDNISONE [Suspect]
     Active Substance: PREDNISONE
     Indication: Myasthenia gravis
     Dosage: ON DAY 4
     Route: 048
  10. PREDNISONE [Suspect]
     Active Substance: PREDNISONE
     Indication: Immune-mediated myositis
     Route: 048
  11. PREDNISONE [Suspect]
     Active Substance: PREDNISONE
     Indication: Myasthenia gravis
     Route: 048
  12. PREDNISONE [Suspect]
     Active Substance: PREDNISONE
     Indication: Immune-mediated myocarditis
     Dosage: DOSE INCREASED
     Route: 048
  13. Immunoglobulin [Concomitant]
     Indication: Immune-mediated myositis
     Dosage: 0.4 G/KG
     Route: 042
  14. Immunoglobulin [Concomitant]
     Indication: Myasthenia gravis
     Dosage: 0.4 G/KG
     Route: 042
  15. MYCOPHENOLATE MOFETIL [Suspect]
     Active Substance: MYCOPHENOLATE MOFETIL
     Indication: Immune-mediated myositis
     Route: 065
  16. MYCOPHENOLATE MOFETIL [Suspect]
     Active Substance: MYCOPHENOLATE MOFETIL
     Indication: Myasthenia gravis
     Route: 065
  17. PREDNISONE [Suspect]
     Active Substance: PREDNISONE
     Indication: Immune-mediated myositis
     Dosage: ON DAY 4
     Route: 048
  18. METHYLPREDNISOLONE [Concomitant]
     Active Substance: METHYLPREDNISOLONE
     Indication: Immune-mediated myositis
     Route: 042
  19. METHYLPREDNISOLONE [Concomitant]
     Active Substance: METHYLPREDNISOLONE
     Indication: Myasthenia gravis
     Route: 042
  20. ABATACEPT [Concomitant]
     Active Substance: ABATACEPT
     Indication: Immune-mediated myositis
     Dosage: SINGLE DOSE
     Route: 042
  21. ABATACEPT [Concomitant]
     Active Substance: ABATACEPT
     Indication: Myasthenia gravis
     Dosage: SINGLE DOSE
     Route: 042

REACTIONS (3)
  - Condition aggravated [Unknown]
  - Acute respiratory failure [Unknown]
  - Product use in unapproved indication [Unknown]
